FAERS Safety Report 7315180-8 (Version None)
Quarter: 2011Q1

REPORT INFORMATION
  Report Type: 
  Country: None (occurrence: None)
  Receive Date: 20110225
  Receipt Date: 20110215
  Transmission Date: 20110831
  Serious: Yes (Other)
  Sender: FDA-Public Use
  Company Number: US-ROCHE-734413

PATIENT
  Sex: Male
  Weight: 77.1 kg

DRUGS (3)
  1. ACCUTANE [Suspect]
     Indication: ACNE
     Route: 065
     Dates: start: 20031107
  2. ADDERALL 10 [Concomitant]
  3. ACCUTANE [Suspect]
     Route: 065
     Dates: start: 20040601, end: 20050601

REACTIONS (6)
  - COLITIS ULCERATIVE [None]
  - RECTAL HAEMORRHAGE [None]
  - ABDOMINAL PAIN [None]
  - ATTENTION DEFICIT/HYPERACTIVITY DISORDER [None]
  - INFLAMMATORY BOWEL DISEASE [None]
  - NAUSEA [None]
